FAERS Safety Report 9686799 (Version 2)
Quarter: 2013Q4

REPORT INFORMATION
  Report Type: Spontaneous
  Country: US (occurrence: US)
  Receive Date: 20131113
  Receipt Date: 20131113
  Transmission Date: 20140711
  Serious: Yes (Death, Hospitalization)
  Sender: FDA-Public Use
  Company Number: US-TAKEDA-TPA2013A03309

PATIENT
  Sex: 0

DRUGS (3)
  1. RAMELTEON [Suspect]
     Indication: INSOMNIA
     Dosage: 8 MG, AT BEDTIME
     Route: 048
  2. ALPRAZOLAM [Concomitant]
  3. ESCITALOPRAM [Concomitant]

REACTIONS (1)
  - Autoimmune hepatitis [Fatal]
